FAERS Safety Report 19674992 (Version 1)
Quarter: 2021Q3

REPORT INFORMATION
  Report Type: Other
  Country: KR (occurrence: KR)
  Receive Date: 20210809
  Receipt Date: 20210809
  Transmission Date: 20211014
  Serious: Yes (Hospitalization, Other)
  Sender: FDA-Public Use
  Company Number: KR-ROCHE-2746736

PATIENT
  Age: 70 Year
  Sex: Male
  Weight: 60 kg

DRUGS (7)
  1. ATEZOLIZUMAB. [Suspect]
     Active Substance: ATEZOLIZUMAB
     Route: 041
     Dates: start: 20180324, end: 20180324
  2. ALBUMIN [Concomitant]
     Active Substance: ALBUMIN HUMAN
     Route: 042
     Dates: start: 20180326, end: 20180326
  3. TRANSFUSION (UNK INGREDIENTS) [Concomitant]
     Dates: start: 20180322, end: 20180322
  4. ATEZOLIZUMAB. [Suspect]
     Active Substance: ATEZOLIZUMAB
     Route: 041
     Dates: start: 20180227, end: 20180227
  5. ULTRACET [Concomitant]
     Active Substance: ACETAMINOPHEN\TRAMADOL HYDROCHLORIDE
     Indication: CANCER PAIN
     Route: 048
     Dates: start: 20180320, end: 2018
  6. ATEZOLIZUMAB. [Suspect]
     Active Substance: ATEZOLIZUMAB
     Route: 041
     Dates: start: 20180414, end: 20180414
  7. ATEZOLIZUMAB. [Suspect]
     Active Substance: ATEZOLIZUMAB
     Indication: TRANSITIONAL CELL CARCINOMA
     Route: 041
     Dates: start: 20180206, end: 20180206

REACTIONS (7)
  - Hyperkalaemia [Recovered/Resolved]
  - Hyponatraemia [Recovering/Resolving]
  - Haemoglobin decreased [Recovering/Resolving]
  - Hypercalcaemia [Recovering/Resolving]
  - Deep vein thrombosis [Recovering/Resolving]
  - Haematochezia [Not Recovered/Not Resolved]
  - Asthenia [Recovering/Resolving]

NARRATIVE: CASE EVENT DATE: 20180320
